FAERS Safety Report 5349303-7 (Version None)
Quarter: 2007Q2

REPORT INFORMATION
  Report Type: 
  Country: None (occurrence: None)
  Receive Date: 20070607
  Receipt Date: 20070528
  Transmission Date: 20071010
  Serious: Yes (Other)
  Sender: FDA-Public Use
  Company Number: B0468667A

PATIENT
  Age: 44 Year
  Sex: Female
  Weight: 70 kg

DRUGS (3)
  1. CEFUROXIME [Suspect]
     Indication: LUNG INFECTION
     Dosage: 250MG UNKNOWN
     Route: 065
     Dates: start: 20070416, end: 20070418
  2. MOISTURISER CREAM [Concomitant]
  3. VENTOLIN [Concomitant]

REACTIONS (8)
  - BURNING SENSATION [None]
  - EYE SWELLING [None]
  - HYPERAESTHESIA [None]
  - PRURITUS [None]
  - RASH MACULAR [None]
  - SKIN EXFOLIATION [None]
  - SKIN TIGHTNESS [None]
  - SUNBURN [None]
